FAERS Safety Report 9023961 (Version 1)
Quarter: 2013Q1

REPORT INFORMATION
  Report Type: Spontaneous
  Country: US (occurrence: US)
  Receive Date: 20130121
  Receipt Date: 20130121
  Transmission Date: 20140127
  Serious: No
  Sender: FDA-Public Use
  Company Number: US-BAYER-2013-006816

PATIENT
  Sex: Male

DRUGS (2)
  1. STIVARGA [Suspect]
     Indication: COLON CANCER METASTATIC
     Dosage: 160 MG, QD
  2. STIVARGA [Suspect]
     Indication: COLON CANCER METASTATIC
     Dosage: 120 MG, QD
     Dates: start: 201301

REACTIONS (2)
  - Blood pressure fluctuation [Recovering/Resolving]
  - Headache [None]
